FAERS Safety Report 5878769-9 (Version None)
Quarter: 2008Q3

REPORT INFORMATION
  Report Type: 
  Country: None (occurrence: None)
  Receive Date: 20080910
  Receipt Date: 20080910
  Transmission Date: 20090109
  Serious: Yes (Other)
  Sender: FDA-Public Use
  Company Number: None

PATIENT
  Sex: Female
  Weight: 72.92 kg

DRUGS (1)
  1. IXABEPILONE [Suspect]
     Dosage: SEE DESCRIPTION

REACTIONS (4)
  - BACK PAIN [None]
  - DYSPNOEA [None]
  - INFUSION RELATED REACTION [None]
  - OXYGEN SATURATION DECREASED [None]
